FAERS Safety Report 16455155 (Version 2)
Quarter: 2019Q2

REPORT INFORMATION
  Report Type: Report from Study
  Country: US (occurrence: US)
  Receive Date: 20190619
  Receipt Date: 20190627
  Transmission Date: 20190711
  Serious: Yes (Hospitalization, Other)
  Sender: FDA-Public Use
  Company Number: US-GILEAD-2019-0414245

PATIENT
  Age: 72 Year
  Sex: Male

DRUGS (1)
  1. AZTREONAM LYSINE [Suspect]
     Active Substance: AZTREONAM LYSINE
     Indication: CYSTIC FIBROSIS
     Dosage: 75 MG, TID, 28DAYS ON THEN 28DAYS OFF
     Dates: start: 20181031

REACTIONS (4)
  - Cystic fibrosis [Unknown]
  - Malaise [Unknown]
  - Drug ineffective [Unknown]
  - Intentional dose omission [Recovered/Resolved]
